FAERS Safety Report 8261071-8 (Version None)
Quarter: 2012Q2

REPORT INFORMATION
  Report Type: 
  Country: None (occurrence: None)
  Receive Date: 20120402
  Receipt Date: 20120316
  Transmission Date: 20120825
  Serious: Yes (Hospitalization, Other)
  Sender: FDA-Public Use
  Company Number: 2012ST000217

PATIENT
  Age: 22 Year
  Sex: Female

DRUGS (7)
  1. MYCOPHENOLIC ACID [Suspect]
     Indication: IMMUNOSUPPRESSION
  2. AMPHOTERICIN B [Suspect]
     Indication: MENINGITIS
     Dosage: 5 MG/KG;QD; 200 MG;QD;
     Dates: start: 20080101, end: 20080101
  3. AMPHOTERICIN B [Suspect]
     Indication: MENINGITIS
     Dosage: 5 MG/KG;QD; 200 MG;QD;
     Dates: start: 20080101, end: 20080101
  4. FLUCYTOSINE [Suspect]
     Indication: MENINGITIS
  5. TACROLIMUS [Suspect]
     Indication: IMMUNOSUPPRESSION
  6. FLUCONAZOLE [Suspect]
     Indication: MENINGITIS
     Dosage: 200 MG;QD;
  7. PREDNISONE [Suspect]
     Indication: IMMUNOSUPPRESSION

REACTIONS (6)
  - CRYPTOCOCCUS TEST POSITIVE [None]
  - IMMUNE RECONSTITUTION SYNDROME [None]
  - CSF CULTURE POSITIVE [None]
  - MENINGITIS [None]
  - CLONUS [None]
  - PAPILLOEDEMA [None]
